FAERS Safety Report 5945710-X (Version None)
Quarter: 2008Q4

REPORT INFORMATION
  Report Type: 
  Country: None (occurrence: None)
  Receive Date: 20081105
  Receipt Date: 20081026
  Transmission Date: 20090506
  Serious: No
  Sender: FDA-Public Use
  Company Number: 035237

PATIENT
  Age: 25 Year
  Sex: Female
  Weight: 65.3 kg

DRUGS (1)
  1. SEASONALE [Suspect]
     Indication: ORAL CONTRACEPTION
     Dosage: 1 TABLET, QD, ORAL
     Route: 048
     Dates: start: 20080719, end: 20081011

REACTIONS (3)
  - ABDOMINAL PAIN [None]
  - HOT FLUSH [None]
  - MUSCLE SPASMS [None]
